FAERS Safety Report 16893648 (Version 1)
Quarter: 2019Q4

REPORT INFORMATION
  Report Type: Report from Study
  Country: US (occurrence: US)
  Receive Date: 20191008
  Receipt Date: 20191008
  Transmission Date: 20200122
  Serious: Yes (Hospitalization, Other)
  Sender: FDA-Public Use
  Company Number: US-ROCHE-2143160

PATIENT
  Age: 68 Year
  Sex: Male
  Weight: 77.5 kg

DRUGS (4)
  1. ATEZOLIZUMAB. [Suspect]
     Active Substance: ATEZOLIZUMAB
     Indication: BILIARY NEOPLASM
     Route: 042
     Dates: start: 20180424
  2. CISPLATIN. [Concomitant]
     Active Substance: CISPLATIN
     Route: 065
     Dates: start: 201612, end: 201704
  3. GEMCITABINE HYDROCHLORIDE. [Concomitant]
     Active Substance: GEMCITABINE HYDROCHLORIDE
     Route: 065
     Dates: start: 201612, end: 201704
  4. COBIMETINIB. [Suspect]
     Active Substance: COBIMETINIB
     Indication: BILIARY NEOPLASM
     Dosage: MOST RECENT DOSE ON 07/MAY/2018
     Route: 048
     Dates: start: 20180424

REACTIONS (7)
  - Blood bilirubin increased [Unknown]
  - Atrial fibrillation [Unknown]
  - Dehydration [Unknown]
  - Bile duct obstruction [Unknown]
  - Rash maculo-papular [Unknown]
  - Cholangitis [Unknown]
  - Blood alkaline phosphatase increased [Unknown]

NARRATIVE: CASE EVENT DATE: 20180604
